FAERS Safety Report 5113484-0 (Version None)
Quarter: 2006Q3

REPORT INFORMATION
  Report Type: 
  Country: None (occurrence: None)
  Receive Date: 20060920
  Receipt Date: 20060905
  Transmission Date: 20061208
  Serious: Yes (Life-Threatening, Hospitalization)
  Sender: FDA-Public Use
  Company Number: 2006-143582-NL

PATIENT
  Age: 74 Year
  Sex: Female

DRUGS (7)
  1. DANAPAROID SODIUM [Suspect]
     Indication: DISSEMINATED INTRAVASCULAR COAGULATION
     Dosage: INTRAVENOUS DRIP
     Route: 041
     Dates: start: 20051230, end: 20060107
  2. IMIPENEM [Concomitant]
  3. ANTITHROMBIN III [Concomitant]
  4. HYDROCORTISONE SODIUM PHOSPHATE [Concomitant]
  5. GABEXATE MESILATE [Concomitant]
  6. SIVELESTAT [Concomitant]
  7. IMMUNE GLOBULIN INTRAVENOUS (HUMAN) [Concomitant]

REACTIONS (4)
  - ANAEMIA POSTOPERATIVE [None]
  - DISEASE PROGRESSION [None]
  - DISSEMINATED INTRAVASCULAR COAGULATION [None]
  - POSTOPERATIVE WOUND INFECTION [None]
